FAERS Safety Report 4470595-0 (Version None)
Quarter: 2004Q4

REPORT INFORMATION
  Report Type: 
  Country: None (occurrence: None)
  Receive Date: 20041005
  Receipt Date: 20040920
  Transmission Date: 20050328
  Serious: Yes (Other)
  Sender: FDA-Public Use
  Company Number: 239406

PATIENT
  Age: 52 Year
  Sex: Male
  Weight: 83 kg

DRUGS (6)
  1. NOVORAPID (INSULIN ASPART) SOLUTION FOR INJECTION, 100U/ML [Suspect]
     Indication: DIABETES MELLITUS INSULIN-DEPENDENT
     Dosage: 20 IU, QD, SUBCUTANEOUS
     Route: 058
     Dates: start: 20010801, end: 20040801
  2. LANTUS [Concomitant]
  3. H-TRONIN [Concomitant]
  4. HYPURIN BOVINE LENTE (INSULIN ZINC SUSPENSION) [Concomitant]
  5. SEMILENTE MC(P) (INSULIN PORCINE) SUSPENSION FOR INJECTION [Concomitant]
  6. PROTAPHANE (INSULIN HUMAN) SUSPENSION FOR INJECTION [Concomitant]

REACTIONS (1)
  - DIABETIC RETINOPATHY [None]
